FAERS Safety Report 7214064-3 (Version None)
Quarter: 2011Q1

REPORT INFORMATION
  Report Type: 
  Country: None (occurrence: None)
  Receive Date: 20110107
  Receipt Date: 20101229
  Transmission Date: 20110831
  Serious: No
  Sender: FDA-Public Use
  Company Number: US-BIOGENIDEC-2010BI045241

PATIENT
  Sex: Female

DRUGS (1)
  1. AVONEX [Suspect]
     Indication: MULTIPLE SCLEROSIS
     Route: 030
     Dates: start: 20101101

REACTIONS (6)
  - PERONEAL NERVE PALSY [None]
  - TREMOR [None]
  - INSOMNIA [None]
  - CHILLS [None]
  - HEADACHE [None]
  - FEELING ABNORMAL [None]
